FAERS Safety Report 7377872-4 (Version None)
Quarter: 2011Q1

REPORT INFORMATION
  Report Type: 
  Country: None (occurrence: None)
  Receive Date: 20110328
  Receipt Date: 20110323
  Transmission Date: 20110831
  Serious: Yes (Death)
  Sender: FDA-Public Use
  Company Number: DE-ROCHE-767472

PATIENT
  Age: 80 Year
  Sex: Female

DRUGS (7)
  1. ACETAMINOPHEN [Concomitant]
  2. LISINOPRIL [Concomitant]
  3. NAPROXEN SODIUM [Suspect]
     Indication: RHEUMATOID ARTHRITIS
     Route: 048
  4. DIGOXIN [Concomitant]
  5. METHOTREXATE [Suspect]
     Indication: RHEUMATOID ARTHRITIS
     Route: 065
  6. METOPROLOL SUCCINATE [Concomitant]
  7. FUROSEMIDE [Concomitant]

REACTIONS (2)
  - HAEMORRHAGE [None]
  - RENAL IMPAIRMENT [None]
